FAERS Safety Report 5040159-9 (Version None)
Quarter: 2006Q2

REPORT INFORMATION
  Report Type: 
  Country: None (occurrence: None)
  Receive Date: 20060630
  Receipt Date: 20060623
  Transmission Date: 20061013
  Serious: Yes (Death, Hospitalization)
  Sender: FDA-Public Use
  Company Number: DE-BRISTOL-MYERS SQUIBB COMPANY-13429634

PATIENT
  Age: 66 Year
  Sex: Male

DRUGS (10)
  1. ERBITUX [Suspect]
     Indication: PANCREATIC CARCINOMA METASTATIC
     Route: 042
  2. OXALIPLATIN [Suspect]
     Indication: PANCREATIC CARCINOMA METASTATIC
     Route: 042
  3. GEMCITABINE [Suspect]
     Indication: PANCREATIC CARCINOMA METASTATIC
     Route: 042
  4. ATENOLOL [Concomitant]
  5. DELIX PLUS [Concomitant]
  6. RAMIPRIL [Concomitant]
  7. PANTOZOL [Concomitant]
  8. NOVALGIN [Concomitant]
  9. PASPERTIN [Concomitant]
  10. DURAGESIC-100 [Concomitant]

REACTIONS (8)
  - ASCITES [None]
  - BLOOD CREATININE INCREASED [None]
  - C-REACTIVE PROTEIN INCREASED [None]
  - DIABETES MELLITUS INADEQUATE CONTROL [None]
  - LUNG INFILTRATION [None]
  - MALIGNANT NEOPLASM PROGRESSION [None]
  - SMALL INTESTINAL OBSTRUCTION [None]
  - VOMITING [None]
